FAERS Safety Report 8759500 (Version 3)
Quarter: 2013Q1

REPORT INFORMATION
  Report Type: Report from Study
  Country: JP (occurrence: JP)
  Receive Date: 20120829
  Receipt Date: 20130123
  Transmission Date: 20140127
  Serious: Yes (Other)
  Sender: FDA-Public Use
  Company Number: JP-MERCK SHARP + DOHME-2012SP036393

PATIENT
  Age: 50 Year
  Sex: Male
  Weight: 64 kg

DRUGS (10)
  1. PEGINTERFERON ALFA-2B [Suspect]
     Indication: CHRONIC HEPATITIS C
     Dosage: 100 MICROGRAM, QW
     Route: 058
     Dates: start: 20120428, end: 20120519
  2. PEGINTERFERON ALFA-2B [Suspect]
     Dosage: 80 MICROGRAM, QW
     Route: 058
     Dates: start: 20120526, end: 20120526
  3. PEGINTERFERON ALFA-2B [Suspect]
     Dosage: 100 MICROGRAM, QW
     Route: 058
     Dates: start: 20120602, end: 20120908
  4. PEGINTERFERON ALFA-2B [Suspect]
     Dosage: 80 MICROGRAM PER KILOGRAM, QW
     Route: 058
     Dates: start: 20120915, end: 20120921
  5. PEGINTERFERON ALFA-2B [Suspect]
     Dosage: 100 MICROGRAM PER KILOGRAM, QW
     Route: 058
     Dates: start: 20120929, end: 20121006
  6. REBETOL [Suspect]
     Indication: CHRONIC HEPATITIS C
     Dosage: 800 MG, QD
     Route: 048
     Dates: start: 20120428, end: 20121005
  7. TELAVIC [Suspect]
     Indication: CHRONIC HEPATITIS C
     Dosage: 2250 MG, QD
     Route: 048
     Dates: start: 20120428, end: 20120502
  8. TELAVIC [Suspect]
     Dosage: 1500 MG, QD
     Route: 048
     Dates: start: 20120503, end: 20120721
  9. ALLEGRA [Concomitant]
     Indication: PROPHYLAXIS
     Dosage: 120 MG, QD, FORMULATION POWDER
     Route: 048
     Dates: start: 20120428, end: 20121012
  10. RIKKUNSHI-TO [Concomitant]
     Indication: PROPHYLAXIS
     Dosage: 7.5 G, QD, FORMULATION-POWDER
     Route: 048
     Dates: start: 20120506, end: 20121012

REACTIONS (2)
  - Platelet count decreased [Recovering/Resolving]
  - Neutrophil count decreased [Recovering/Resolving]
